FAERS Safety Report 18286123 (Version 2)
Quarter: 2020Q3

REPORT INFORMATION
  Report Type: Spontaneous
  Country: US (occurrence: US)
  Receive Date: 20200919
  Receipt Date: 20200921
  Transmission Date: 20201103
  Serious: No
  Sender: FDA-Public Use
  Company Number: US-SA-2020SA250111

PATIENT

DRUGS (2)
  1. SOLIQUA 100/33 [Suspect]
     Active Substance: INSULIN GLARGINE\LIXISENATIDE
     Indication: TYPE 2 DIABETES MELLITUS
     Dosage: 33 UNITS DAILY (IN THE DAY)
     Route: 065
     Dates: start: 202005
  2. LANTUS [Concomitant]
     Active Substance: INSULIN GLARGINE
     Dosage: 21?22 UNITS AT NIGHT
     Route: 065

REACTIONS (7)
  - Blood glucose decreased [Unknown]
  - Weight decreased [Unknown]
  - Heart rate decreased [Unknown]
  - Injection site swelling [Unknown]
  - Therapeutic product effect delayed [Unknown]
  - Dyspepsia [Unknown]
  - Peripheral coldness [Unknown]

NARRATIVE: CASE EVENT DATE: 2020
